FAERS Safety Report 17995671 (Version 2)
Quarter: 2020Q3

REPORT INFORMATION
  Report Type: Report from Study
  Country: US (occurrence: US)
  Receive Date: 20200708
  Receipt Date: 20200713
  Transmission Date: 20201103
  Serious: No
  Sender: FDA-Public Use
  Company Number: US-SA-2020SA168015

PATIENT

DRUGS (3)
  1. FLOVENT [Concomitant]
     Active Substance: FLUTICASONE PROPIONATE
     Indication: ASTHMA
  2. DUPILUMAB [Suspect]
     Active Substance: DUPILUMAB
     Indication: ASTHMA
  3. FLONASE SENSIMIST ALLERGY RELIEF [Concomitant]
     Active Substance: FLUTICASONE FUROATE
     Indication: NASAL POLYPS

REACTIONS (16)
  - Chest discomfort [Unknown]
  - Rhinorrhoea [Unknown]
  - Cough [Unknown]
  - Asthma [Unknown]
  - Sleep disorder [Unknown]
  - Nasal pruritus [Unknown]
  - Sneezing [Unknown]
  - Therapeutic response decreased [Unknown]
  - Middle insomnia [Unknown]
  - Upper-airway cough syndrome [Unknown]
  - Dyspnoea [Unknown]
  - Wheezing [Unknown]
  - Quality of life decreased [Unknown]
  - Nasal congestion [Unknown]
  - Anosmia [Unknown]
  - Sinus operation [Unknown]
